FAERS Safety Report 7707390-2 (Version None)
Quarter: 2011Q3

REPORT INFORMATION
  Report Type: 
  Country: None (occurrence: None)
  Receive Date: 20110824
  Receipt Date: 20110817
  Transmission Date: 20111222
  Serious: Yes (Other)
  Sender: FDA-Public Use
  Company Number: US-ABBOTT-11P-163-0848002-00

PATIENT
  Age: 66 Year
  Sex: Female

DRUGS (14)
  1. HUMIRA [Suspect]
     Indication: RHEUMATOID ARTHRITIS
     Dates: start: 20090101, end: 20110101
  2. METFORMIN HYDROCHLORIDE [Concomitant]
     Indication: PRODUCT USED FOR UNKNOWN INDICATION
  3. VICODIN [Concomitant]
     Indication: ARTHRALGIA
     Dosage: 10/660 MG
  4. ROBAXIN [Concomitant]
     Indication: MUSCLE SPASMS
  5. ARAVA [Concomitant]
     Indication: PRODUCT USED FOR UNKNOWN INDICATION
  6. LISINOPRIL [Concomitant]
     Indication: PRODUCT USED FOR UNKNOWN INDICATION
  7. SIMAVASTATIN [Concomitant]
     Indication: PRODUCT USED FOR UNKNOWN INDICATION
  8. FOLIC ACID [Concomitant]
     Indication: PRODUCT USED FOR UNKNOWN INDICATION
  9. VITAMIN D [Concomitant]
     Indication: PRODUCT USED FOR UNKNOWN INDICATION
  10. CALCIUM CARBONATE [Concomitant]
     Indication: PRODUCT USED FOR UNKNOWN INDICATION
  11. ASPIRIN [Concomitant]
     Indication: PRODUCT USED FOR UNKNOWN INDICATION
  12. VICODIN [Concomitant]
     Indication: FIBROMYALGIA
  13. HUMIRA [Suspect]
     Dates: start: 20110101, end: 20110601
  14. BACLOFEN [Concomitant]
     Indication: MUSCLE SPASMS

REACTIONS (10)
  - CYST [None]
  - MYALGIA [None]
  - ABSCESS LIMB [None]
  - KNEE ARTHROPLASTY [None]
  - CATARACT OPERATION [None]
  - PAIN IN EXTREMITY [None]
  - HIP ARTHROPLASTY [None]
  - BLEPHAROPLASTY [None]
  - PAIN [None]
  - MASS [None]
